FAERS Safety Report 16118550 (Version 1)
Quarter: 2019Q1

REPORT INFORMATION
  Report Type: Spontaneous
  Country: FR (occurrence: FR)
  Receive Date: 20190326
  Receipt Date: 20190326
  Transmission Date: 20190418
  Serious: Yes (Hospitalization)
  Sender: FDA-Public Use
  Company Number: FR-ASTRAZENECA-2019SE43979

PATIENT
  Age: 85 Year
  Sex: Male
  Weight: 80 kg

DRUGS (10)
  1. FUCIDINE (FUSIDATE SODIUM) [Suspect]
     Active Substance: FUSIDATE SODIUM
     Indication: SPONDYLITIS
     Route: 048
     Dates: start: 20190131, end: 20190204
  2. PERINDOPRIL [Concomitant]
     Active Substance: PERINDOPRIL
     Route: 048
  3. STAGID [Concomitant]
     Active Substance: METFORMIN PAMOATE
     Route: 048
  4. RIFADINE [Concomitant]
     Active Substance: RIFAMPIN
     Route: 048
     Dates: start: 20190131, end: 20190204
  5. PREVISCAN [Concomitant]
  6. JANUVIA [Concomitant]
     Active Substance: SITAGLIPTIN PHOSPHATE
     Route: 048
  7. NOVONORM [Concomitant]
     Active Substance: REPAGLINIDE
     Route: 048
  8. CRESTOR [Suspect]
     Active Substance: ROSUVASTATIN CALCIUM
     Indication: HYPERCHOLESTEROLAEMIA
     Route: 048
     Dates: end: 20190204
  9. ACEBUTOLOL [Concomitant]
     Active Substance: ACEBUTOLOL
     Route: 048
  10. HEMIGOXINE NATIVELLE [Concomitant]
     Active Substance: DIGOXIN
     Route: 048

REACTIONS (2)
  - Contraindicated product prescribed [Recovered/Resolved]
  - Rhabdomyolysis [Recovering/Resolving]

NARRATIVE: CASE EVENT DATE: 20190131
